FAERS Safety Report 5940220-8 (Version None)
Quarter: 2008Q4

REPORT INFORMATION
  Report Type: 
  Country: None (occurrence: None)
  Receive Date: 20081104
  Receipt Date: 20081023
  Transmission Date: 20090506
  Serious: Yes (Death, Hospitalization, Other)
  Sender: FDA-Public Use
  Company Number: FR-ELI_LILLY_AND_COMPANY-FR200810005432

PATIENT
  Age: 83 Year
  Sex: Male

DRUGS (2)
  1. XIGRIS [Suspect]
     Indication: SEPTIC SHOCK
     Dosage: UNK, UNKNOWN
     Route: 042
     Dates: start: 20080817, end: 20080818
  2. ANTIBIOTICS [Concomitant]
     Indication: PNEUMONIA LEGIONELLA
     Dates: start: 20080815, end: 20080801

REACTIONS (3)
  - HAEMOPTYSIS [None]
  - VENTRICULAR FIBRILLATION [None]
  - VENTRICULAR TACHYCARDIA [None]
